FAERS Safety Report 9169198 (Version 1)
Quarter: 2013Q1

REPORT INFORMATION
  Report Type: Report from Study
  Country: FR (occurrence: FR)
  Receive Date: 20130318
  Receipt Date: 20130318
  Transmission Date: 20140127
  Serious: Yes (Death)
  Sender: FDA-Public Use
  Company Number: FR-ROCHE-1200949

PATIENT
  Sex: 0

DRUGS (3)
  1. MYCOPHENOLATE MOFETIL [Suspect]
     Indication: PROPHYLAXIS AGAINST TRANSPLANT REJECTION
     Route: 065
  2. CYCLOSPORINE A [Suspect]
     Indication: PROPHYLAXIS AGAINST TRANSPLANT REJECTION
     Dosage: 130 TO 200 MICROMOL/L,
     Route: 065
  3. CYCLOSPORINE A [Suspect]
     Dosage: 200 AND 300 MICROMOL/L
     Route: 065

REACTIONS (2)
  - Herpes virus infection [Fatal]
  - Hepatic function abnormal [Fatal]
